FAERS Safety Report 17772452 (Version 2)
Quarter: 2024Q2

REPORT INFORMATION
  Report Type: Report from Study
  Country: US (occurrence: US)
  Receive Date: 20200512
  Receipt Date: 20240607
  Transmission Date: 20240716
  Serious: Yes (Death)
  Sender: FDA-Public Use
  Company Number: US-PUMA BIOTECHNOLOGY, LTD.-2020US002582

PATIENT

DRUGS (2)
  1. NERLYNX [Suspect]
     Active Substance: NERATINIB
     Indication: Malignant pleural effusion
     Dosage: 240 MG (6 TABLETS), DAILY
     Route: 048
     Dates: start: 20200416
  2. NERLYNX [Suspect]
     Active Substance: NERATINIB
     Indication: Breast cancer female

REACTIONS (3)
  - Death [Fatal]
  - Malignant pleural effusion [Unknown]
  - Off label use [Unknown]

NARRATIVE: CASE EVENT DATE: 20200416
